FAERS Safety Report 11999904 (Version 1)
Quarter: 2016Q1

REPORT INFORMATION
  Report Type: Spontaneous
  Country: US (occurrence: US)
  Receive Date: 20160204
  Receipt Date: 20160204
  Transmission Date: 20160526
  Serious: Yes (Other)
  Sender: FDA-Public Use
  Company Number: US-ACTAVIS-2016-01456

PATIENT
  Age: 24 Year
  Sex: Male

DRUGS (2)
  1. OXYMORPHONE HYDROCHLORIDE (AELLC) [Suspect]
     Active Substance: OXYMORPHONE HYDROCHLORIDE
     Indication: DRUG ABUSE
     Dosage: 30 MG, SINGLE
     Route: 045
  2. OXYMORPHONE HYDROCHLORIDE (AELLC) [Suspect]
     Active Substance: OXYMORPHONE HYDROCHLORIDE
     Dosage: UNK
     Route: 045

REACTIONS (2)
  - Deafness neurosensory [Recovered/Resolved]
  - Drug abuse [Unknown]
